FAERS Safety Report 4792476-5 (Version None)
Quarter: 2005Q4

REPORT INFORMATION
  Report Type: 
  Country: None (occurrence: None)
  Receive Date: 20051010
  Receipt Date: 20051004
  Transmission Date: 20060501
  Serious: Yes (Hospitalization)
  Sender: FDA-Public Use
  Company Number: JP-JPN-A20052351

PATIENT
  Age: 74 Year
  Sex: Female

DRUGS (2)
  1. VALTREX [Suspect]
     Indication: HERPES ZOSTER
     Dosage: 1000MG TWICE PER DAY
     Route: 048
     Dates: start: 20050921
  2. LOXONIN [Suspect]
     Dosage: 1TAB THREE TIMES PER DAY
     Route: 048

REACTIONS (1)
  - OLIGURIA [None]
